FAERS Safety Report 14741662 (Version 1)
Quarter: 2018Q2

REPORT INFORMATION
  Report Type: Spontaneous
  Country: US (occurrence: US)
  Receive Date: 20180410
  Receipt Date: 20180410
  Transmission Date: 20180711
  Serious: No
  Sender: FDA-Public Use
  Company Number: US-GLAXOSMITHKLINE-US2018059335

PATIENT
  Sex: Female

DRUGS (3)
  1. VALACYCLOVIR [Suspect]
     Active Substance: VALACYCLOVIR HYDROCHLORIDE
     Indication: HERPES VIRUS INFECTION
     Dosage: 1000 MG, QD
     Route: 048
     Dates: start: 2017
  2. VALACYCLOVIR [Suspect]
     Active Substance: VALACYCLOVIR HYDROCHLORIDE
     Dosage: 500 MG, QD
  3. METOPROLOL. [Concomitant]
     Active Substance: METOPROLOL

REACTIONS (7)
  - Fluid retention [Not Recovered/Not Resolved]
  - Constipation [Not Recovered/Not Resolved]
  - Urine flow decreased [Not Recovered/Not Resolved]
  - Blood pressure increased [Not Recovered/Not Resolved]
  - Drug ineffective [Unknown]
  - Dry skin [Not Recovered/Not Resolved]
  - Dry eye [Not Recovered/Not Resolved]
